FAERS Safety Report 10986766 (Version 1)
Quarter: 2015Q2

REPORT INFORMATION
  Report Type: Spontaneous
  Country: CA (occurrence: None)
  Receive Date: 20150402
  Receipt Date: 20150402
  Transmission Date: 20150821
  Serious: Yes (Hospitalization)
  Sender: FDA-Public Use
  Company Number: 2801075

PATIENT
  Age: 32 Year
  Sex: Female

DRUGS (6)
  1. BUPIVACAINE [Concomitant]
     Active Substance: BUPIVACAINE
  2. EPHEDRINE [Concomitant]
     Active Substance: EPHEDRINE
  3. MORPHINE SULPHATE [Suspect]
     Active Substance: MORPHINE SULFATE
     Indication: CAESAREAN SECTION
     Route: 037
  4. PHENYLEPHRINE [Suspect]
     Active Substance: PHENYLEPHRINE\PHENYLEPHRINE HYDROCHLORIDE
     Indication: CAESAREAN SECTION
     Dosage: 1 MINUTE
     Route: 041
  5. ATROPINE [Concomitant]
     Active Substance: ATROPINE
  6. FENTANYL CITRATE. [Suspect]
     Active Substance: FENTANYL CITRATE
     Indication: CAESAREAN SECTION
     Route: 037

REACTIONS (5)
  - Hypotension [None]
  - Anterior spinal artery syndrome [None]
  - Neuralgia [None]
  - Haemoglobin decreased [None]
  - Spinal cord injury [None]
